FAERS Safety Report 16162216 (Version 3)
Quarter: 2025Q1

REPORT INFORMATION
  Report Type: Report from Study
  Country: PL (occurrence: PL)
  Receive Date: 20190405
  Receipt Date: 20250331
  Transmission Date: 20250409
  Serious: Yes (Other)
  Sender: AUROBINDO
  Company Number: PL-AUROBINDO-AUR-APL-2019-017880

PATIENT

DRUGS (2)
  1. PAROXETINE [Interacting]
     Active Substance: PAROXETINE
     Indication: Product used for unknown indication
     Route: 065
  2. GINKGO [Suspect]
     Active Substance: GINKGO
     Indication: Product used for unknown indication
     Route: 065

REACTIONS (4)
  - Gastrointestinal haemorrhage [Unknown]
  - Herbal interaction [Unknown]
  - Respiratory tract haemorrhage [Unknown]
  - Central nervous system haemorrhage [Unknown]
